FAERS Safety Report 8265636-9 (Version None)
Quarter: 2012Q2

REPORT INFORMATION
  Report Type: 
  Country: None (occurrence: None)
  Receive Date: 20120406
  Receipt Date: 20120403
  Transmission Date: 20120825
  Serious: Yes (Life-Threatening, Hospitalization, Other)
  Sender: FDA-Public Use
  Company Number: CHPA2012BR006302

PATIENT
  Sex: Male
  Weight: 68 kg

DRUGS (16)
  1. MOTILIUM [Concomitant]
     Indication: CONSTIPATION
     Dosage: UNK, UNK
     Route: 048
     Dates: start: 20090101
  2. RISPERIDONE [Concomitant]
     Indication: SCHIZOPHRENIA
     Dosage: UNK, UNK
     Dates: start: 20090101
  3. ZYPREXA [Concomitant]
     Indication: SCHIZOPHRENIA
     Dosage: UNK, UNK
  4. BENEFIBER W/ WHEAT DEXTRIN [Suspect]
     Dosage: 4 TSP, UNK
     Route: 048
     Dates: start: 20090827
  5. SEROQUEL [Concomitant]
     Indication: SCHIZOPHRENIA
     Dosage: UNK, UNK
     Dates: start: 20090101
  6. LITHIUM CARBONATE [Concomitant]
     Indication: SCHIZOPHRENIA
     Dosage: UNK, UNK
  7. TRILEPTAL [Concomitant]
     Indication: SCHIZOPHRENIA
     Dosage: UNK, UNK
     Route: 048
     Dates: start: 20090101
  8. DIAZEPAM [Concomitant]
     Indication: ANXIETY
     Dosage: 5 MG, BID
     Route: 048
     Dates: start: 20090101
  9. NEXIUM [Concomitant]
     Indication: GASTROINTESTINAL DISORDER
     Dosage: 40 MG, QN
     Route: 048
     Dates: start: 20090101
  10. DRUG THERAPY NOS [Concomitant]
     Indication: SCHIZOPHRENIA
     Dosage: UNK, UNK
  11. LEPONEX ^WANDER^ [Concomitant]
     Indication: SCHIZOPHRENIA
     Dosage: UNK, UNK
     Dates: start: 20090601
  12. DRUG THERAPY NOS [Concomitant]
     Indication: CONSTIPATION
     Dosage: 1000 MG DAILY
     Route: 048
     Dates: start: 20090101
  13. HALDOL [Concomitant]
     Indication: SCHIZOPHRENIA
     Dosage: UNK, UNK
     Dates: start: 20090101
  14. LEPONEX ^WANDER^ [Concomitant]
     Dosage: 2 TABLETS IN THE MORNING AND 7 TABLETS AT NIGHT
     Route: 048
     Dates: start: 20090601
  15. BENEFIBER W/ WHEAT DEXTRIN [Suspect]
     Indication: CONSTIPATION
     Dosage: 1 TSP, TID
     Route: 048
  16. GEODON [Concomitant]
     Indication: SCHIZOPHRENIA
     Dosage: UNK, UNK
     Dates: start: 20090101

REACTIONS (10)
  - TOOTH INJURY [None]
  - DELUSION [None]
  - OFF LABEL USE [None]
  - INAPPROPRIATE SCHEDULE OF DRUG ADMINISTRATION [None]
  - TARDIVE DYSKINESIA [None]
  - SUICIDE ATTEMPT [None]
  - NAUSEA [None]
  - PANIC DISORDER [None]
  - ANXIETY [None]
  - UNDERDOSE [None]
